FAERS Safety Report 6197146-7 (Version None)
Quarter: 2009Q2

REPORT INFORMATION
  Report Type: 
  Country: None (occurrence: None)
  Receive Date: 20090520
  Receipt Date: 20090513
  Transmission Date: 20091009
  Serious: Yes (Hospitalization, Disabling)
  Sender: FDA-Public Use
  Company Number: BR-ABBOTT-08P-020-0489806-00

PATIENT
  Sex: Female

DRUGS (4)
  1. HUMIRA [Suspect]
     Indication: RHEUMATOID ARTHRITIS
     Route: 058
     Dates: start: 20080411, end: 20080901
  2. HUMIRA [Suspect]
     Route: 058
  3. METHOTREXATE [Concomitant]
     Indication: RHEUMATOID ARTHRITIS
  4. OCULAR COLLYRIUM [Concomitant]
     Indication: EYE DISORDER
     Dates: start: 20080801

REACTIONS (4)
  - EYE DISORDER [None]
  - INFLUENZA [None]
  - INJECTION SITE URTICARIA [None]
  - VISUAL ACUITY REDUCED [None]
